FAERS Safety Report 22252996 (Version 2)
Quarter: 2024Q4

REPORT INFORMATION
  Report Type: Spontaneous
  Country: PL (occurrence: PL)
  Receive Date: 20230426
  Receipt Date: 20241230
  Transmission Date: 20250115
  Serious: Yes (Other)
  Sender: NOVARTIS
  Company Number: PL-002147023-NVSC2023PL093247

PATIENT
  Age: 18 Year
  Sex: Male

DRUGS (7)
  1. ELTROMBOPAG OLAMINE [Suspect]
     Active Substance: ELTROMBOPAG OLAMINE
     Indication: Immune thrombocytopenia
     Dosage: 50-75 MG, QD
     Route: 065
     Dates: start: 201810
  2. ELTROMBOPAG OLAMINE [Suspect]
     Active Substance: ELTROMBOPAG OLAMINE
     Dosage: 75 MG, QD (ONCE EVERY SEVERAL WEEKS IVGG + DEXAVEN) (AN ATTEMPT AT PLT STABILISATION THROUGH MAINTAI
     Route: 065
  3. ELTROMBOPAG OLAMINE [Suspect]
     Active Substance: ELTROMBOPAG OLAMINE
     Dosage: 50 MG (EVERY THIRD DAY)
     Route: 065
  4. CYCLOSPORINE [Suspect]
     Active Substance: CYCLOSPORINE
     Indication: Immune thrombocytopenia
     Dosage: 400 MG, QD
     Route: 065
     Dates: end: 201910
  5. HUMAN IMMUNOGLOBULIN G [Suspect]
     Active Substance: HUMAN IMMUNOGLOBULIN G
     Indication: Immune thrombocytopenia
     Dosage: UNK (DURING REVOLADE THERAPY THE EFFECT OF IVGG PERSISTED FOR SEVERAL WEEKS) (29)
     Route: 065
     Dates: start: 201604, end: 201805
  6. DEXAMETHASONE [Suspect]
     Active Substance: DEXAMETHASONE
     Indication: Immune thrombocytopenia
     Dosage: UNK
     Route: 065
  7. NPLATE [Suspect]
     Active Substance: ROMIPLOSTIM
     Indication: Product used for unknown indication
     Dosage: UNK, FOUR 250 ?G AMPOULES
     Route: 065

REACTIONS (7)
  - Gastrointestinal haemorrhage [Unknown]
  - Conjunctival haemorrhage [Unknown]
  - COVID-19 [Unknown]
  - Skin disorder [Unknown]
  - Platelet count abnormal [Unknown]
  - Haematuria [Unknown]
  - Drug ineffective [Recovered/Resolved]

NARRATIVE: CASE EVENT DATE: 20211211
